FAERS Safety Report 7109823-1 (Version None)
Quarter: 2010Q4

REPORT INFORMATION
  Report Type: 
  Country: None (occurrence: None)
  Receive Date: 20101118
  Receipt Date: 20101105
  Transmission Date: 20110411
  Serious: Yes (Other)
  Sender: FDA-Public Use
  Company Number: PHHY2010JP66948

PATIENT
  Sex: Female
  Weight: 50 kg

DRUGS (4)
  1. EXJADE [Suspect]
     Indication: IRON OVERLOAD
     Dosage: 1000 MG, UNK
     Route: 048
     Dates: start: 20080814
  2. PAXIL [Concomitant]
     Dosage: 30 MG, UNK
     Route: 048
     Dates: start: 20081113
  3. ARICEPT [Concomitant]
     Dosage: 5 MG, UNK
     Route: 048
     Dates: start: 20081211
  4. BLOOD TRANSFUSION, AUXILIARY PRODUCTS [Concomitant]
     Dosage: 312 UNITS
     Dates: start: 20050101

REACTIONS (6)
  - CONDITION AGGRAVATED [None]
  - DEMENTIA ALZHEIMER'S TYPE [None]
  - HAEMOGLOBIN DECREASED [None]
  - HYPOAESTHESIA [None]
  - VITAMIN B1 DEFICIENCY [None]
  - VITAMIN B6 DEFICIENCY [None]
